FAERS Safety Report 6681656-X (Version None)
Quarter: 2010Q2

REPORT INFORMATION
  Report Type: 
  Country: None (occurrence: None)
  Receive Date: 20100414
  Receipt Date: 20100401
  Transmission Date: 20101027
  Serious: Yes (Hospitalization)
  Sender: FDA-Public Use
  Company Number: ZA-ELI_LILLY_AND_COMPANY-ZA201004001405

PATIENT
  Sex: Female
  Weight: 95 kg

DRUGS (8)
  1. GEMCITABINE HCL [Suspect]
     Indication: BREAST CANCER METASTATIC
     Dosage: 1000 MG/M2, CYCLICAL
     Route: 042
     Dates: start: 20100301
  2. VINFLUNINE [Suspect]
     Indication: BREAST CANCER METASTATIC
     Dosage: 320 MG/M2, CYCLICAL
     Route: 042
     Dates: start: 20100301
  3. AMLOC [Concomitant]
     Dates: start: 19900101
  4. ATACAND [Concomitant]
     Dates: start: 19900101
  5. LASIX [Concomitant]
     Dates: start: 19900101
  6. MORPHINE [Concomitant]
  7. ARTHROTEC [Concomitant]
  8. TORADOL [Concomitant]
     Indication: PAIN

REACTIONS (1)
  - CELLULITIS [None]
